FAERS Safety Report 4541580-5 (Version None)
Quarter: 2004Q4

REPORT INFORMATION
  Report Type: 
  Country: None (occurrence: None)
  Receive Date: 20041227
  Receipt Date: 20030925
  Transmission Date: 20050328
  Serious: No
  Sender: FDA-Public Use
  Company Number: DEU-2003-0000505

PATIENT
  Age: 17 Year
  Sex: Female
  Weight: 63 kg

DRUGS (1)
  1. HYDROSOM 3.0%/3.0% (PHOSPHATIDYL CHOLINE / PVPI GEL 3.0/3.0%) [Suspect]
     Indication: THERMAL BURN
     Dosage: TOPICAL
     Route: 061
     Dates: start: 20030514, end: 20030523

REACTIONS (4)
  - ALANINE AMINOTRANSFERASE INCREASED [None]
  - BLOOD THYROID STIMULATING HORMONE INCREASED [None]
  - GAMMA-GLUTAMYLTRANSFERASE INCREASED [None]
  - WHITE BLOOD CELL COUNT INCREASED [None]
